FAERS Safety Report 25707574 (Version 1)
Quarter: 2025Q3

REPORT INFORMATION
  Report Type: Spontaneous
  Country: CA (occurrence: CA)
  Receive Date: 20250820
  Receipt Date: 20250820
  Transmission Date: 20251021
  Serious: Yes (Other)
  Sender: HLS THERAPEUTICS
  Company Number: CA-HLS-202501561

PATIENT
  Age: 44 Year
  Sex: Male
  Weight: 83 kg

DRUGS (4)
  1. CLOZAPINE [Suspect]
     Active Substance: CLOZAPINE
     Indication: Depression suicidal
     Route: 065
  2. CLOZAPINE [Suspect]
     Active Substance: CLOZAPINE
     Indication: Insomnia
     Route: 065
  3. CLOZAPINE [Suspect]
     Active Substance: CLOZAPINE
     Indication: Depression suicidal
     Route: 065
  4. CLOZAPINE [Suspect]
     Active Substance: CLOZAPINE
     Indication: Insomnia
     Route: 065

REACTIONS (3)
  - Eosinophilia [Recovered/Resolved]
  - Myocarditis [Recovered/Resolved]
  - Off label use [Recovered/Resolved]
